FAERS Safety Report 8396628-7 (Version None)
Quarter: 2012Q2

REPORT INFORMATION
  Report Type: 
  Country: None (occurrence: None)
  Receive Date: 20120530
  Receipt Date: 20120524
  Transmission Date: 20120825
  Serious: Yes (Hospitalization)
  Sender: FDA-Public Use
  Company Number: HK-PFIZER INC-2012127706

PATIENT
  Age: 49 Year
  Sex: Female
  Weight: 57.8 kg

DRUGS (11)
  1. PREDNISOLONE [Concomitant]
     Indication: HEPATIC PAIN
     Dosage: UNK
     Route: 048
     Dates: start: 20120509
  2. CRIZOTINIB [Suspect]
     Dosage: 250 MG, 2X/DAY
     Dates: start: 20120424
  3. PANTOPRAZOLE SODIUM [Concomitant]
     Indication: ABDOMINAL DISCOMFORT
     Dosage: UNK
     Route: 048
     Dates: start: 20120509
  4. NAPROXEN [Concomitant]
     Indication: PAIN
     Dosage: UNK
     Route: 048
     Dates: start: 20120509
  5. FLAGYL [Concomitant]
     Indication: INFECTION
     Dosage: UNK
     Route: 048
     Dates: start: 20120516
  6. TRAMADOL [Concomitant]
     Indication: PAIN
     Dosage: UNK
     Route: 048
     Dates: start: 20120429, end: 20120510
  7. SENOKOT [Concomitant]
     Indication: CONSTIPATION
     Dosage: UNK
     Route: 048
     Dates: start: 20120509
  8. ENZYPLEX [Concomitant]
     Indication: APPETITE DISORDER
     Dosage: UNK
     Route: 048
     Dates: start: 20120429
  9. COLACE [Concomitant]
     Indication: CONSTIPATION
     Dosage: UNK
     Route: 048
     Dates: start: 20120509
  10. LACTULOSE [Concomitant]
     Indication: CONSTIPATION
     Dosage: UNK
     Route: 048
     Dates: start: 20120509
  11. ALDACTONE [Concomitant]
     Indication: ASCITES
     Dosage: UNK
     Route: 048
     Dates: start: 20120516

REACTIONS (1)
  - ASCITES [None]
